FAERS Safety Report 5412268-3 (Version None)
Quarter: 2007Q3

REPORT INFORMATION
  Report Type: 
  Country: None (occurrence: None)
  Receive Date: 20070810
  Receipt Date: 20070810
  Transmission Date: 20080115
  Serious: Yes (Hospitalization)
  Sender: FDA-Public Use
  Company Number: None

PATIENT
  Age: 88 Year
  Sex: Male

DRUGS (8)
  1. ZYVOX [Suspect]
     Indication: GANGRENE
     Dosage: 600 MG Q12 IV
     Route: 042
     Dates: start: 20060608, end: 20060712
  2. INVANZ [Concomitant]
  3. INSULIN [Concomitant]
  4. MORPHINE [Concomitant]
  5. ZANTAC 150 [Concomitant]
  6. DIGOXIN [Concomitant]
  7. CIPRO [Concomitant]
  8. AMIODARONE HCL [Concomitant]

REACTIONS (3)
  - DRUG TOXICITY [None]
  - PLATELET COUNT DECREASED [None]
  - SEPSIS [None]
